FAERS Safety Report 10181932 (Version 2)
Quarter: 2014Q2

REPORT INFORMATION
  Report Type: Spontaneous
  Country: JP (occurrence: JP)
  Receive Date: 20140519
  Receipt Date: 20140519
  Transmission Date: 20141212
  Serious: Yes (Hospitalization)
  Sender: FDA-Public Use
  Company Number: JP-B.I. PHARMACEUTICALS,INC./RIDGEFIELD-2014-BI-17576GD

PATIENT
  Age: 86 Year
  Sex: Male
  Weight: 50 kg

DRUGS (2)
  1. MICARDIS [Suspect]
     Indication: HYPERTENSION
     Dosage: 20 MG
     Route: 065
  2. HYDROCHLOROTHIAZIDE [Suspect]
     Indication: HYPERTENSION
     Dosage: 12.5 MG
     Route: 065

REACTIONS (4)
  - Hyponatraemia [Recovered/Resolved]
  - Nausea [Unknown]
  - Lethargy [Unknown]
  - Skin turgor decreased [Unknown]
